FAERS Safety Report 6790849-2 (Version None)
Quarter: 2010Q2

REPORT INFORMATION
  Report Type: 
  Country: None (occurrence: None)
  Receive Date: 20100624
  Receipt Date: 20100617
  Transmission Date: 20101027
  Serious: Yes (Other)
  Sender: FDA-Public Use
  Company Number: A0865729A

PATIENT
  Age: 80 Year
  Sex: Male

DRUGS (4)
  1. ADVAIR DISKUS 100/50 [Suspect]
     Indication: INTERSTITIAL LUNG DISEASE
     Dosage: 1PUFF SINGLE DOSE
     Route: 055
     Dates: start: 20100604
  2. OXYGEN [Concomitant]
  3. PRILOSEC [Concomitant]
  4. DITROPAN [Concomitant]

REACTIONS (4)
  - CHOKING [None]
  - RESPIRATORY DISORDER [None]
  - RETCHING [None]
  - THROAT TIGHTNESS [None]
